FAERS Safety Report 24139856 (Version 1)
Quarter: 2024Q3

REPORT INFORMATION
  Report Type: Spontaneous
  Country: PL (occurrence: None)
  Receive Date: 20240726
  Receipt Date: 20240726
  Transmission Date: 20241017
  Serious: Yes (Other)
  Sender: HRA PHARMA
  Company Number: PL-ORG100014127-2024000207

PATIENT
  Age: 25 Year
  Sex: Male
  Weight: 106 kg

DRUGS (1)
  1. MITOTANE [Suspect]
     Active Substance: MITOTANE
     Indication: Adrenal gland cancer
     Dosage: THERAPY ONGOING; DOSE UNKNOWN
     Route: 048
     Dates: start: 20210428

REACTIONS (1)
  - Epilepsy [Recovering/Resolving]

NARRATIVE: CASE EVENT DATE: 20210609
